FAERS Safety Report 23170404 (Version 2)
Quarter: 2023Q4

REPORT INFORMATION
  Report Type: Report from Study
  Country: ZA (occurrence: ZA)
  Receive Date: 20231110
  Receipt Date: 20231124
  Transmission Date: 20240109
  Serious: Yes (Death)
  Sender: FDA-Public Use
  Company Number: ZA-BAYER-2023A159862

PATIENT
  Sex: Male

DRUGS (3)
  1. EYLEA [Suspect]
     Active Substance: AFLIBERCEPT
     Indication: Neovascular age-related macular degeneration
     Dosage: 1 X VIAL FOR LEYE, SOLUTION FOR INJECTION,  40 MG/ML
     Dates: start: 20221216, end: 20221216
  2. EYLEA [Suspect]
     Active Substance: AFLIBERCEPT
     Dosage: 1 X VIAL FOR LEYE, SOLUTION FOR INJECTION, 40 MG/ML
     Dates: start: 20231021, end: 20231021
  3. EYLEA [Suspect]
     Active Substance: AFLIBERCEPT
     Dosage: 1 X VIAL FOR LEYE, SOLUTION FOR INJECTION, 40 MG/ML
     Dates: start: 20231107, end: 20231107

REACTIONS (1)
  - Death [Fatal]
